FAERS Safety Report 6413953-7 (Version None)
Quarter: 2009Q4

REPORT INFORMATION
  Report Type: 
  Country: None (occurrence: None)
  Receive Date: 20091022
  Receipt Date: 20091022
  Transmission Date: 20100525
  Serious: Yes (Life-Threatening, Hospitalization, Disabling)
  Sender: FDA-Public Use
  Company Number: None

PATIENT
  Age: 15 Year
  Sex: Female
  Weight: 61.2356 kg

DRUGS (1)
  1. YASMIN [Suspect]
     Indication: ORAL CONTRACEPTION
     Dosage: 1 TABLET 1X DAILY ORAL
     Route: 048
     Dates: start: 20050901, end: 20060227

REACTIONS (2)
  - PULMONARY EMBOLISM [None]
  - THROMBOSIS [None]
